FAERS Safety Report 11039285 (Version 1)
Quarter: 2015Q2

REPORT INFORMATION
  Report Type: Spontaneous
  Country: US (occurrence: US)
  Receive Date: 20150416
  Receipt Date: 20150416
  Transmission Date: 20150821
  Serious: No
  Sender: FDA-Public Use
  Company Number: US-ASTRAZENECA-2014SE09068

PATIENT
  Sex: Male

DRUGS (1)
  1. BYDUREON [Suspect]
     Active Substance: EXENATIDE
     Route: 058

REACTIONS (5)
  - Decreased appetite [Unknown]
  - Injection site pain [Unknown]
  - Weight decreased [Not Recovered/Not Resolved]
  - Injection site haemorrhage [Unknown]
  - Injection site extravasation [Unknown]
